FAERS Safety Report 14385232 (Version 2)
Quarter: 2020Q1

REPORT INFORMATION
  Report Type: Spontaneous
  Country: US (occurrence: US)
  Receive Date: 20180115
  Receipt Date: 20200130
  Transmission Date: 20200409
  Serious: Yes (Other)
  Sender: FDA-Public Use
  Company Number: US-SA-2017SA000351

PATIENT
  Age: 34 Year
  Sex: Female
  Weight: 74 kg

DRUGS (4)
  1. TAXOTERE [Suspect]
     Active Substance: DOCETAXEL
     Indication: BREAST CANCER FEMALE
     Dosage: 160 MG,Q3W
     Route: 042
     Dates: start: 20130311, end: 20130311
  2. NEOSAR [Concomitant]
     Active Substance: CYCLOPHOSPHAMIDE
  3. TAXOTERE [Suspect]
     Active Substance: DOCETAXEL
     Dosage: 160 MG,Q3W
     Route: 042
     Dates: start: 20130717, end: 20130717
  4. DOXORUBICIN [Concomitant]
     Active Substance: DOXORUBICIN

REACTIONS (4)
  - Emotional distress [Unknown]
  - Pain [Unknown]
  - Alopecia [Not Recovered/Not Resolved]
  - Psychological trauma [Unknown]

NARRATIVE: CASE EVENT DATE: 20140117
